FAERS Safety Report 8033096-9 (Version None)
Quarter: 2011Q4

REPORT INFORMATION
  Report Type: 
  Country: None (occurrence: None)
  Receive Date: 20111202
  Receipt Date: 20101108
  Transmission Date: 20120403
  Serious: Yes (Hospitalization, Other)
  Sender: FDA-Public Use
  Company Number: WAES 0903USA03156

PATIENT
  Age: 69 Year
  Sex: Female
  Weight: 68.4932 kg

DRUGS (4)
  1. FOSAMAX [Suspect]
     Indication: OSTEOPOROSIS
     Dosage: 70 MG/WKY/PO
     Route: 048
     Dates: start: 20021001, end: 20051102
  2. FOSAMAX [Suspect]
     Indication: OSTEOPENIA
     Dosage: 70 MG/WKY/PO
     Route: 048
     Dates: start: 20021001, end: 20051102
  3. FOSAMAX PLUS D [Suspect]
     Indication: OSTEOPENIA
     Dosage: 70MG/2800 IU/UNK/PO
     Route: 048
     Dates: start: 20051102, end: 20070424
  4. FOSAMAX PLUS D [Suspect]
     Indication: OSTEOPOROSIS
     Dosage: 70MG/2800 IU/UNK/PO
     Route: 048
     Dates: start: 20051102, end: 20070424

REACTIONS (12)
  - BONE FRAGMENTATION [None]
  - DIARRHOEA [None]
  - DRUG INEFFECTIVE [None]
  - BACK PAIN [None]
  - RESORPTION BONE INCREASED [None]
  - OSTEONECROSIS OF JAW [None]
  - CATARACT [None]
  - ABDOMINAL PAIN UPPER [None]
  - HEADACHE [None]
  - HYPOKALAEMIA [None]
  - ADVERSE EVENT [None]
  - HYPERTENSION [None]
